FAERS Safety Report 19251502 (Version 1)
Quarter: 2021Q2

REPORT INFORMATION
  Report Type: Spontaneous
  Country: FR (occurrence: FR)
  Receive Date: 20210513
  Receipt Date: 20210513
  Transmission Date: 20210717
  Serious: Yes (Hospitalization)
  Sender: FDA-Public Use
  Company Number: FR-TEVA-2021-FR-1910318

PATIENT
  Age: 81 Year
  Sex: Female
  Weight: 53 kg

DRUGS (12)
  1. MITOMYCINE [Suspect]
     Active Substance: MITOMYCIN
     Indication: ANAL CANCER
     Dosage: 13.2MILLIGRAM
     Route: 042
     Dates: start: 20210322, end: 20210322
  2. FLUOROUR (FLUOROURACIL) [Suspect]
     Active Substance: FLUOROURACIL
     Dosage: 3250MILLIGRAM
     Route: 042
     Dates: start: 20210222, end: 20210222
  3. DEXCHLOR [Concomitant]
     Dosage: 5MILLIGRAM
     Route: 065
     Dates: start: 20210322, end: 20210322
  4. FLUOROUR (FLUOROURACIL) [Suspect]
     Active Substance: FLUOROURACIL
     Dosage: 2175MILLIGRAM
     Route: 042
     Dates: start: 20210322, end: 20210322
  5. METHYLPRED [Concomitant]
     Active Substance: METHYLPREDNISOLONE
     Dosage: 40MILLIGRAM
     Route: 065
     Dates: start: 20210222, end: 20210222
  6. ONDANSETRON [Concomitant]
     Active Substance: ONDANSETRON
     Dosage: 8MILLIGRAM
     Route: 065
     Dates: start: 20210222, end: 20210222
  7. DEXCHLOR [Concomitant]
     Dosage: 5MILLIGRAM
     Route: 065
     Dates: start: 20210222, end: 20210222
  8. MITOMYCINE [Suspect]
     Active Substance: MITOMYCIN
     Dosage: 19.4MILLIGRAM
     Route: 042
     Dates: start: 20210222, end: 20210222
  9. METHYLPRED [Concomitant]
     Active Substance: METHYLPREDNISOLONE
     Dosage: 40MILLIGRAM
     Route: 065
     Dates: start: 20210322, end: 20210322
  10. ONDANSETRON [Concomitant]
     Active Substance: ONDANSETRON
     Dosage: 8MILLIGRAM
     Route: 065
     Dates: start: 20210322, end: 20210322
  11. FLUOROUR (FLUOROURACIL) [Suspect]
     Active Substance: FLUOROURACIL
     Indication: ANAL CANCER
     Dosage: 3275MILLIGRAM
     Route: 042
     Dates: start: 20210324, end: 20210324
  12. FLUOROUR (FLUOROURACIL) [Suspect]
     Active Substance: FLUOROURACIL
     Dosage: 4850MILLIGRAM
     Route: 042
     Dates: start: 20210224, end: 20210224

REACTIONS (2)
  - Gastrointestinal disorder [Recovering/Resolving]
  - Pancytopenia [Recovering/Resolving]

NARRATIVE: CASE EVENT DATE: 20210326
